FAERS Safety Report 9325531 (Version 1)
Quarter: 2013Q2

REPORT INFORMATION
  Report Type: Spontaneous
  Country: US (occurrence: None)
  Receive Date: 20130531
  Receipt Date: 20130531
  Transmission Date: 20140414
  Serious: Yes (Other)
  Sender: FDA-Public Use
  Company Number: None

PATIENT
  Age: 57 Year
  Sex: Female

DRUGS (1)
  1. SUTENT [Suspect]
     Dosage: 50 MG ONCE DAILY ON 4 WEEKS OFF 2 WEEKS
     Route: 048
     Dates: start: 20130423

REACTIONS (3)
  - Oral pain [None]
  - Pain in extremity [None]
  - Ageusia [None]
